FAERS Safety Report 7247503-2 (Version None)
Quarter: 2011Q1

REPORT INFORMATION
  Report Type: 
  Country: None (occurrence: None)
  Receive Date: 20110127
  Receipt Date: 20110119
  Transmission Date: 20110831
  Serious: Yes (Hospitalization)
  Sender: FDA-Public Use
  Company Number: JP-ROCHE-749379

PATIENT
  Sex: Male

DRUGS (4)
  1. ACTEMRA [Suspect]
     Indication: STILL'S DISEASE ADULT ONSET
     Route: 042
     Dates: start: 20100810, end: 20101224
  2. BAKTAR [Concomitant]
     Route: 048
  3. PREDNISOLONE [Concomitant]
     Dosage: DOSE FROM: PERORAL AGENT
     Route: 048
  4. METHOTREXATE [Concomitant]
     Route: 048

REACTIONS (2)
  - DRUG ERUPTION [None]
  - SUBCUTANEOUS HAEMATOMA [None]
